FAERS Safety Report 7399940-3 (Version None)
Quarter: 2011Q2

REPORT INFORMATION
  Report Type: 
  Country: None (occurrence: None)
  Receive Date: 20110407
  Receipt Date: 20110330
  Transmission Date: 20111010
  Serious: Yes (Life-Threatening, Hospitalization)
  Sender: FDA-Public Use
  Company Number: US-JNJFOC-20110401143

PATIENT
  Age: 49 Year
  Sex: Female
  Weight: 62 kg

DRUGS (10)
  1. OXYBUTYNIN [Suspect]
     Indication: NEUROGENIC BLADDER
     Route: 065
  2. METOCLOPRAMIDE [Concomitant]
     Route: 065
  3. VOLTAREN [Concomitant]
     Route: 065
  4. AMANTADINE HCL [Concomitant]
     Route: 065
  5. PREMARIN [Concomitant]
     Route: 065
  6. FIORINAL NOS [Concomitant]
     Route: 065
  7. IMIPRAMINE [Concomitant]
     Route: 065
  8. MACRODANTIN [Concomitant]
     Route: 065
  9. POTASSIUM CHLORIDE [Concomitant]
     Route: 065
  10. CARAFATE [Concomitant]
     Route: 065

REACTIONS (5)
  - BRONCHOSPASM [None]
  - RASH [None]
  - DYSPHONIA [None]
  - SWELLING [None]
  - URTICARIA [None]
